FAERS Safety Report 9046176 (Version 1)
Quarter: 2013Q1

REPORT INFORMATION
  Report Type: Spontaneous
  Country: IT (occurrence: IT)
  Receive Date: 20130201
  Receipt Date: 20130201
  Transmission Date: 20140127
  Serious: Yes (Death, Other)
  Sender: FDA-Public Use
  Company Number: PHHY2013IT008224

PATIENT
  Sex: Female

DRUGS (2)
  1. ZOMETA [Suspect]
     Indication: PLASMA CELL MYELOMA
     Dosage: 4 MG, MONTHLY
     Route: 042
     Dates: start: 20110101, end: 20110501
  2. AREDIA [Suspect]
     Indication: PLASMA CELL MYELOMA
     Dosage: 90 MG, MONTHLY
     Route: 042
     Dates: start: 20070101, end: 20101210

REACTIONS (1)
  - Osteonecrosis of jaw [Fatal]
